FAERS Safety Report 17249530 (Version 1)
Quarter: 2020Q1

REPORT INFORMATION
  Report Type: Report from Study
  Country: CN (occurrence: CN)
  Receive Date: 20200108
  Receipt Date: 20200108
  Transmission Date: 20200409
  Serious: Yes (Hospitalization, Other)
  Sender: FDA-Public Use
  Company Number: CN-AMGEN-CHNCT2018187752

PATIENT
  Age: 36 Year
  Sex: Male

DRUGS (7)
  1. LOW MOLECULAR WEIGHT HEPARIN SODIUM [Concomitant]
     Active Substance: HEPARIN SODIUM
     Indication: END STAGE RENAL DISEASE
     Dosage: UNK
  2. ISOSORBIDE MONONITRATE. [Concomitant]
     Active Substance: ISOSORBIDE MONONITRATE
     Indication: CORONARY ARTERY DISEASE
     Dosage: 30 MILLIGRAM
     Route: 048
  3. METOPROLOL. [Concomitant]
     Active Substance: METOPROLOL
     Indication: HYPERTENSION
     Dosage: 25 MILLIGRAM, BID
     Route: 048
  4. CINACALCET HCL [Suspect]
     Active Substance: CINACALCET HYDROCHLORIDE
     Indication: HYPERPARATHYROIDISM SECONDARY
     Dosage: 25 MILLIGRAM
     Route: 065
     Dates: start: 20180824
  5. IRBESARTAN. [Concomitant]
     Active Substance: IRBESARTAN
     Indication: HYPERTENSION
     Dosage: 150 MILLIGRAM, BID
     Route: 048
  6. RECOMBINANT HUMAN ERYTHROPOIETIN INJECTION (CHO CELL) [Concomitant]
     Indication: END STAGE RENAL DISEASE
     Dosage: 4000 UNIT, QD
     Route: 042
  7. LOW MOLECULAR WEIGHT HEPARIN SODIUM [Concomitant]
     Active Substance: HEPARIN SODIUM
     Indication: GLOMERULONEPHRITIS CHRONIC
     Dosage: 5000 UNIT, 3 TIMES/WK
     Route: 042

REACTIONS (1)
  - Erysipelas [Recovered/Resolved]

NARRATIVE: CASE EVENT DATE: 20180903
